FAERS Safety Report 18175306 (Version 1)
Quarter: 2020Q3

REPORT INFORMATION
  Report Type: Spontaneous
  Country: US (occurrence: US)
  Receive Date: 20200820
  Receipt Date: 20200820
  Transmission Date: 20201103
  Serious: Yes (Other)
  Sender: FDA-Public Use
  Company Number: None

PATIENT

DRUGS (1)
  1. GAMUNEX?C [Suspect]
     Active Substance: HUMAN IMMUNOGLOBULIN G
     Dosage: ?          OTHER FREQUENCY:ONCE A MONTH;?
     Dates: start: 20190528

REACTIONS (7)
  - Dyspepsia [None]
  - Infusion related reaction [None]
  - Swelling face [None]
  - Lymphadenopathy [None]
  - Dysphagia [None]
  - Swelling [None]
  - Lip swelling [None]

NARRATIVE: CASE EVENT DATE: 20200818
